FAERS Safety Report 4345802-5 (Version None)
Quarter: 2004Q2

REPORT INFORMATION
  Report Type: 
  Country: None (occurrence: None)
  Receive Date: 20040421
  Receipt Date: 20040409
  Transmission Date: 20050107
  Serious: Yes (Hospitalization)
  Sender: FDA-Public Use
  Company Number: JP-JNJFOC-20040201526

PATIENT
  Age: 72 Year
  Sex: Male
  Weight: 53 kg

DRUGS (12)
  1. REMICADE [Suspect]
     Indication: RHEUMATOID ARTHRITIS
     Dosage: SEE IMAGE
     Route: 041
     Dates: start: 20031206, end: 20031206
  2. REMICADE [Suspect]
     Indication: RHEUMATOID ARTHRITIS
     Dosage: SEE IMAGE
     Route: 041
     Dates: start: 20031220, end: 20031220
  3. REMICADE [Suspect]
     Indication: RHEUMATOID ARTHRITIS
     Dosage: SEE IMAGE
     Route: 041
     Dates: start: 20040116, end: 20040116
  4. RHEUMATREX [Suspect]
     Indication: RHEUMATOID ARTHRITIS
     Dosage: SEE IMAGE
     Route: 048
     Dates: start: 20030606, end: 20031120
  5. RHEUMATREX [Suspect]
     Indication: RHEUMATOID ARTHRITIS
     Dosage: SEE IMAGE
     Route: 048
     Dates: start: 20031120, end: 20040203
  6. PREDNISOLONE [Suspect]
     Indication: RHEUMATOID ARTHRITIS
     Dosage: SEE IMAGE
     Route: 048
     Dates: start: 20030926, end: 20040203
  7. PREDNISOLONE [Suspect]
     Indication: RHEUMATOID ARTHRITIS
     Dosage: SEE IMAGE
     Route: 048
     Dates: start: 20040204, end: 20040211
  8. PREDNISOLONE [Suspect]
     Indication: RHEUMATOID ARTHRITIS
     Dosage: SEE IMAGE
     Route: 048
     Dates: start: 20040212
  9. LOXONIN (LOXOPROFEN SODIUM) [Concomitant]
  10. RIMATIL (BUCILLAMINE) [Concomitant]
  11. GASTROM (ECABET MONOSODIUM) [Concomitant]
  12. LEUCOVORIN CALCIUM [Concomitant]

REACTIONS (3)
  - ANOREXIA [None]
  - PULMONARY TUBERCULOSIS [None]
  - PYREXIA [None]
